FAERS Safety Report 8447686-2 (Version None)
Quarter: 2012Q2

REPORT INFORMATION
  Report Type: 
  Country: None (occurrence: None)
  Receive Date: 20120619
  Receipt Date: 20120613
  Transmission Date: 20120825
  Serious: Yes (Other)
  Sender: FDA-Public Use
  Company Number: US-PFIZER INC-2012143649

PATIENT
  Sex: Female
  Weight: 67.12 kg

DRUGS (6)
  1. LYRICA [Suspect]
     Indication: HERPES ZOSTER
     Dosage: 300 MG, DAILY
  2. CRESTOR [Concomitant]
     Dosage: UNK
  3. QUININE HYDROCHLORIDE [Concomitant]
     Indication: SYSTEMIC LUPUS ERYTHEMATOSUS
     Dosage: ''0.9MG''
  4. VESICARE [Concomitant]
     Indication: INCONTINENCE
     Dosage: UNK
  5. ELAVIL [Concomitant]
     Indication: SLEEP DISORDER
     Dosage: UNK
     Dates: start: 20120101
  6. BCG ORGANISMS-METHANOL EXTRACTION RESIDUE [Concomitant]
     Indication: TUBERCULOSIS BLADDER
     Dosage: UNK

REACTIONS (4)
  - PAIN [None]
  - ROAD TRAFFIC ACCIDENT [None]
  - HYPOKINESIA [None]
  - POST-TRAUMATIC PAIN [None]
